FAERS Safety Report 6402435-4 (Version None)
Quarter: 2009Q4

REPORT INFORMATION
  Report Type: 
  Country: None (occurrence: None)
  Receive Date: 20091015
  Receipt Date: 20091006
  Transmission Date: 20100525
  Serious: Yes (Other)
  Sender: FDA-Public Use
  Company Number: US-ELI_LILLY_AND_COMPANY-US200910001468

PATIENT
  Sex: Female

DRUGS (3)
  1. BYETTA [Suspect]
     Indication: TYPE 1 DIABETES MELLITUS
     Route: 058
  2. NOVOLOG [Concomitant]
     Indication: TYPE 1 DIABETES MELLITUS
  3. SYMLIN [Concomitant]
     Indication: TYPE 1 DIABETES MELLITUS
     Dosage: 15 UG, 3/D
     Route: 058
     Dates: start: 20090922

REACTIONS (3)
  - HAEMODIALYSIS [None]
  - NAUSEA [None]
  - OFF LABEL USE [None]
